FAERS Safety Report 17292009 (Version 1)
Quarter: 2020Q1

REPORT INFORMATION
  Report Type: Spontaneous
  Country: US (occurrence: US)
  Receive Date: 20191231
  Receipt Date: 20191231
  Transmission Date: 20200409
  Serious: Yes (Hospitalization)
  Sender: FDA-Public Use
  Company Number: None

PATIENT
  Age: 9 Year
  Sex: Female
  Weight: 24.7 kg

DRUGS (4)
  1. CYCLOPHOSPHAMIDE. [Suspect]
     Active Substance: CYCLOPHOSPHAMIDE
     Dates: end: 20191118
  2. DACTINOMYCIN [Suspect]
     Active Substance: DACTINOMYCIN
     Dates: end: 20191118
  3. VINCRISTINE [Suspect]
     Active Substance: VINCRISTINE
     Dates: end: 20191202
  4. CAMPTOSAR [Suspect]
     Active Substance: IRINOTECAN HYDROCHLORIDE
     Dates: end: 20191219

REACTIONS (10)
  - Rhinorrhoea [None]
  - Asthenia [None]
  - Diarrhoea [None]
  - Cough [None]
  - Human rhinovirus test positive [None]
  - Malnutrition [None]
  - Enterovirus test positive [None]
  - Influenza B virus test positive [None]
  - Chills [None]
  - Pyrexia [None]

NARRATIVE: CASE EVENT DATE: 20191226
